FAERS Safety Report 4776384-1 (Version None)
Quarter: 2005Q3

REPORT INFORMATION
  Report Type: 
  Country: None (occurrence: None)
  Receive Date: 20050921
  Receipt Date: 20050913
  Transmission Date: 20060218
  Serious: Yes (Other)
  Sender: FDA-Public Use
  Company Number: SGB1-2005-00359

PATIENT
  Age: 30 Year
  Sex: Female

DRUGS (2)
  1. ANAGRELIDE HCL [Suspect]
     Indication: ESSENTIAL THROMBOCYTHAEMIA
     Dosage: 1-2MG DAILY, UNKNOWN ORAL
     Route: 048
     Dates: start: 19970410, end: 20030101
  2. CARDIAC DRUGS [Concomitant]

REACTIONS (2)
  - NEPHRITIS INTERSTITIAL [None]
  - RENAL IMPAIRMENT [None]
